FAERS Safety Report 16843248 (Version 1)
Quarter: 2019Q3

REPORT INFORMATION
  Report Type: Spontaneous
  Country: US (occurrence: US)
  Receive Date: 20190802
  Receipt Date: 20190802
  Transmission Date: 20191005
  Serious: No
  Sender: FDA-Public Use
  Company Number: None

PATIENT
  Age: 42 Week
  Sex: Female
  Weight: 155.13 kg

DRUGS (2)
  1. XELJANZ [Suspect]
     Active Substance: TOFACITINIB CITRATE
     Indication: RHEUMATOID ARTHRITIS
     Route: 048
     Dates: start: 201902
  2. XELJANZ [Suspect]
     Active Substance: TOFACITINIB CITRATE
     Indication: RHEUMATOID ARTHRITIS

REACTIONS (9)
  - Gastrooesophageal reflux disease [None]
  - Ulcer [None]
  - Vomiting [None]
  - Nausea [None]
  - Hypoaesthesia oral [None]
  - Abdominal pain upper [None]
  - Blister [None]
  - Tongue disorder [None]
  - Constipation [None]
